FAERS Safety Report 19210736 (Version 1)
Quarter: 2021Q2

REPORT INFORMATION
  Report Type: Spontaneous
  Country: GR (occurrence: GR)
  Receive Date: 20210504
  Receipt Date: 20210504
  Transmission Date: 20210717
  Serious: Yes (Other)
  Sender: FDA-Public Use
  Company Number: GR-AMGEN-GRCSP2021066145

PATIENT

DRUGS (2)
  1. OTEZLA [Suspect]
     Active Substance: APREMILAST
     Indication: BEHCET^S SYNDROME
     Dosage: UNK
     Route: 048
  2. CORTISONE [Concomitant]
     Active Substance: CORTISONE
     Indication: BEHCET^S SYNDROME
     Dosage: UNK

REACTIONS (1)
  - Behcet^s syndrome [Unknown]
